FAERS Safety Report 13705306 (Version 1)
Quarter: 2017Q2

REPORT INFORMATION
  Report Type: Spontaneous
  Country: NL (occurrence: NL)
  Receive Date: 20170630
  Receipt Date: 20170630
  Transmission Date: 20170830
  Serious: Yes (Death, Other)
  Sender: FDA-Public Use
  Company Number: NL-ACCORD-050369

PATIENT
  Age: 70 Year
  Sex: Male
  Weight: 57.6 kg

DRUGS (14)
  1. CAPECITABINE ACCORD [Suspect]
     Active Substance: CAPECITABINE
     Indication: COLORECTAL CANCER METASTATIC
     Dosage: TWO STRENGTH DRUGS - 500 MG AND 150 MG
     Route: 048
     Dates: start: 20170322, end: 20170402
  2. SIMVASTATIN. [Concomitant]
     Active Substance: SIMVASTATIN
     Indication: HYPERCHOLESTEROLAEMIA
     Route: 048
     Dates: end: 20170404
  3. METOCLOPRAMIDE. [Concomitant]
     Active Substance: METOCLOPRAMIDE
     Indication: IMPAIRED GASTRIC EMPTYING
     Dosage: 3DD 10 MG
     Route: 048
     Dates: end: 20170404
  4. SPIRONOLACTONE. [Concomitant]
     Active Substance: SPIRONOLACTONE
     Indication: HYPERTENSION
     Route: 048
     Dates: end: 20170404
  5. METFORMIN [Concomitant]
     Active Substance: METFORMIN HYDROCHLORIDE
     Indication: DIABETES MELLITUS
     Dosage: 2DD 500 MG
     Route: 048
     Dates: start: 20170222, end: 20170404
  6. TEMAZEPAM. [Concomitant]
     Active Substance: TEMAZEPAM
     Route: 048
     Dates: end: 20170404
  7. ESOMEPRAZOLE/ESOMEPRAZOLE MAGNESIUM/ESOMEPRAZOLE SODIUM [Concomitant]
     Indication: IMPAIRED GASTRIC EMPTYING
     Dosage: 1DD 40 MG
     Route: 048
     Dates: end: 20170404
  8. AMLODIPINE [Concomitant]
     Active Substance: AMLODIPINE BESYLATE
     Indication: HYPERTENSION
     Dosage: 1DD
     Route: 048
     Dates: end: 20170404
  9. LANTUS [Concomitant]
     Active Substance: INSULIN GLARGINE
     Indication: DIABETES MELLITUS
     Dosage: 32 IE
     Route: 048
     Dates: end: 20170404
  10. BACLOFEN. [Concomitant]
     Active Substance: BACLOFEN
     Indication: HICCUPS
     Dosage: 3DD 10 MG
     Route: 048
     Dates: start: 20170301, end: 20170404
  11. OXALIPLATIN. [Suspect]
     Active Substance: OXALIPLATIN
     Indication: COLORECTAL CANCER METASTATIC
     Route: 042
     Dates: start: 20170322, end: 20170322
  12. NOVORAPID [Concomitant]
     Active Substance: INSULIN ASPART
     Indication: DIABETES MELLITUS
     Dosage: 4 IE
     Route: 048
     Dates: end: 20170404
  13. PHENETICILLIN/PHENETICILLIN POTASSIUM [Concomitant]
     Indication: SPLENECTOMY
     Dosage: FENETICILLIN, 2DD 250 MG
     Route: 048
     Dates: start: 201610, end: 20170404
  14. LOPERAMIDE [Concomitant]
     Active Substance: LOPERAMIDE
     Indication: DIARRHOEA
     Dosage: 3DD  2 MG
     Route: 048
     Dates: start: 201610, end: 20170404

REACTIONS (2)
  - Intestinal ischaemia [Fatal]
  - Toxicity to various agents [Unknown]

NARRATIVE: CASE EVENT DATE: 20170328
